FAERS Safety Report 15475501 (Version 1)
Quarter: 2018Q4

REPORT INFORMATION
  Report Type: Spontaneous
  Country: CN (occurrence: CN)
  Receive Date: 20181008
  Receipt Date: 20181008
  Transmission Date: 20190205
  Serious: Yes (Life-Threatening, Other)
  Sender: FDA-Public Use
  Company Number: CN-PURDUE PHARMA-GBR-2018-0059919

PATIENT
  Age: 66 Year
  Sex: Female
  Weight: 57 kg

DRUGS (1)
  1. MS CONTIN [Suspect]
     Active Substance: MORPHINE SULFATE
     Indication: ABDOMINAL PAIN
     Dosage: 30 MG, DAILY
     Route: 048
     Dates: start: 20180719, end: 20180719

REACTIONS (3)
  - Coma [Unknown]
  - Cardiac arrest [Unknown]
  - Respiratory depression [Recovering/Resolving]

NARRATIVE: CASE EVENT DATE: 20180720
